FAERS Safety Report 25723732 (Version 1)
Quarter: 2025Q3

REPORT INFORMATION
  Report Type: Spontaneous
  Country: US (occurrence: US)
  Receive Date: 20250825
  Receipt Date: 20250825
  Transmission Date: 20251020
  Serious: No
  Sender: ABBVIE
  Company Number: US-ABBVIE-6428527

PATIENT
  Age: 68 Year
  Sex: Female

DRUGS (1)
  1. UPADACITINIB [Suspect]
     Active Substance: UPADACITINIB
     Indication: Spondylitis
     Route: 048
     Dates: start: 202508

REACTIONS (5)
  - Skin burning sensation [Unknown]
  - Eye irritation [Unknown]
  - Pruritus [Unknown]
  - Erythema [Unknown]
  - Discomfort [Unknown]

NARRATIVE: CASE EVENT DATE: 20250801
